FAERS Safety Report 23983288 (Version 3)
Quarter: 2025Q1

REPORT INFORMATION
  Report Type: Spontaneous
  Country: US (occurrence: US)
  Receive Date: 20240617
  Receipt Date: 20250101
  Transmission Date: 20250409
  Serious: Yes (Hospitalization, Other)
  Sender: BRISTOL-MYERS SQUIBB COMPANY
  Company Number: US-BRISTOL-MYERS SQUIBB COMPANY-2024-095143

PATIENT
  Age: 86 Year
  Sex: Female

DRUGS (2)
  1. POMALYST [Suspect]
     Active Substance: POMALIDOMIDE
     Indication: Plasma cell myeloma
     Route: 048
     Dates: end: 20240425
  2. POMALYST [Suspect]
     Active Substance: POMALIDOMIDE
     Dosage: QD FOR 21 DAYS ON, 7 DAYS OFF
     Route: 048

REACTIONS (6)
  - Pneumonia [Unknown]
  - Post procedural infection [Unknown]
  - Renal mass [Unknown]
  - Rash pruritic [Unknown]
  - Arthropathy [Unknown]
  - Rash [Unknown]
